FAERS Safety Report 5409489-2 (Version None)
Quarter: 2007Q3

REPORT INFORMATION
  Report Type: 
  Country: None (occurrence: None)
  Receive Date: 20070809
  Receipt Date: 20070726
  Transmission Date: 20080115
  Serious: Yes (Other)
  Sender: FDA-Public Use
  Company Number: PHBS2007AT12538

PATIENT
  Age: 81 Year
  Sex: Male

DRUGS (2)
  1. DIOVAN HCT [Suspect]
  2. DIOVAN [Suspect]

REACTIONS (2)
  - PAIN IN EXTREMITY [None]
  - SKIN NECROSIS [None]
